FAERS Safety Report 17991118 (Version 1)
Quarter: 2020Q3

REPORT INFORMATION
  Report Type: Spontaneous
  Country: CA (occurrence: CA)
  Receive Date: 20200707
  Receipt Date: 20200707
  Transmission Date: 20201103
  Serious: Yes (Life-Threatening, Hospitalization)
  Sender: FDA-Public Use
  Company Number: CA-TEVA-2020-CA-1796869

PATIENT
  Age: 2 Month
  Sex: Female
  Weight: 5 kg

DRUGS (47)
  1. DOXORUBICIN HYDROCHLORIDE INJECTION [Suspect]
     Active Substance: DOXORUBICIN HYDROCHLORIDE
     Indication: HEPATOBLASTOMA
     Route: 042
  2. VINCRISTINE SULFATE. [Suspect]
     Active Substance: VINCRISTINE SULFATE
     Route: 042
  3. CISPLATIN INJECTION [Suspect]
     Active Substance: CISPLATIN
     Route: 042
  4. CEFTRIAXONE FOR INJECTION USP [Concomitant]
     Active Substance: CEFTRIAXONE
  5. FILGRASTIM [Concomitant]
     Active Substance: FILGRASTIM
  6. ZINC. [Concomitant]
     Active Substance: ZINC
  7. VINCRISTINE SULFATE. [Suspect]
     Active Substance: VINCRISTINE SULFATE
     Route: 042
  8. AMLODIPINE [Concomitant]
     Active Substance: AMLODIPINE BESYLATE
  9. CHOLECALCIFEROL [Concomitant]
     Active Substance: CHOLECALCIFEROL
  10. HEPARIN CALCIUM [Concomitant]
     Active Substance: HEPARIN CALCIUM
  11. DOXORUBICIN HYDROCHLORIDE INJECTION [Suspect]
     Active Substance: DOXORUBICIN HYDROCHLORIDE
     Route: 042
  12. VINCRISTINE SULFATE. [Suspect]
     Active Substance: VINCRISTINE SULFATE
     Route: 042
  13. ACETAMINOPHEN. [Concomitant]
     Active Substance: ACETAMINOPHEN
  14. DEXAMETHASONE. [Concomitant]
     Active Substance: DEXAMETHASONE
  15. VANCOMYCIN [Concomitant]
     Active Substance: VANCOMYCIN
  16. MAGNESIUM [Concomitant]
     Active Substance: MAGNESIUM
  17. SODIUM [Concomitant]
     Active Substance: SODIUM
  18. SULFAMETHOXAZOLE AND TRIMETHOPRIM [Concomitant]
     Active Substance: SULFAMETHOXAZOLE\TRIMETHOPRIM
  19. TOBRAMYCIN. [Concomitant]
     Active Substance: TOBRAMYCIN
  20. ZINECARD [Concomitant]
     Active Substance: DEXRAZOXANE HYDROCHLORIDE
  21. VINCRISTINE SULFATE. [Suspect]
     Active Substance: VINCRISTINE SULFATE
     Route: 042
  22. CISPLATIN INJECTION [Suspect]
     Active Substance: CISPLATIN
     Route: 042
  23. DIMENHYDRINATE. [Concomitant]
     Active Substance: DIMENHYDRINATE
  24. METOCLOPRAMIDE. [Concomitant]
     Active Substance: METOCLOPRAMIDE
  25. DOXORUBICIN HYDROCHLORIDE INJECTION [Suspect]
     Active Substance: DOXORUBICIN HYDROCHLORIDE
     Route: 042
  26. VINCRISTINE SULFATE. [Suspect]
     Active Substance: VINCRISTINE SULFATE
     Route: 042
  27. VINCRISTINE SULFATE. [Suspect]
     Active Substance: VINCRISTINE SULFATE
     Route: 042
  28. CISPLATIN INJECTION [Suspect]
     Active Substance: CISPLATIN
     Indication: HEPATOBLASTOMA
     Route: 042
  29. ALTEPLASE (T?PA) [Concomitant]
  30. CEFOTAXIME [Concomitant]
     Active Substance: CEFOTAXIME SODIUM
  31. FUROSEMIDE. [Concomitant]
     Active Substance: FUROSEMIDE
  32. LANSOPRAZOLE. [Concomitant]
     Active Substance: LANSOPRAZOLE
  33. NIFEDIPINE. [Concomitant]
     Active Substance: NIFEDIPINE
  34. ONDANSETRON [Concomitant]
     Active Substance: ONDANSETRON
  35. POTASSIUM [Concomitant]
     Active Substance: POTASSIUM
  36. VINCRISTINE SULFATE. [Suspect]
     Active Substance: VINCRISTINE SULFATE
     Route: 042
  37. VINCRISTINE SULFATE. [Suspect]
     Active Substance: VINCRISTINE SULFATE
     Route: 042
  38. VINCRISTINE SULFATE. [Suspect]
     Active Substance: VINCRISTINE SULFATE
     Route: 042
  39. DEXMEDETOMIDINE. [Concomitant]
     Active Substance: DEXMEDETOMIDINE
  40. DEXTROSE. [Concomitant]
     Active Substance: DEXTROSE
  41. NYSTATIN. [Concomitant]
     Active Substance: NYSTATIN
  42. SUCROSE TABLET (S#71) [Concomitant]
  43. VINCRISTINE SULFATE. [Suspect]
     Active Substance: VINCRISTINE SULFATE
     Route: 042
  44. VINCRISTINE SULFATE. [Suspect]
     Active Substance: VINCRISTINE SULFATE
     Route: 042
  45. IRON [Concomitant]
     Active Substance: IRON
  46. MORPHINE [Concomitant]
     Active Substance: MORPHINE
  47. POLYETHYLENE GLYCOL [Concomitant]
     Active Substance: POLYETHYLENE GLYCOLS

REACTIONS (2)
  - Aplastic anaemia [Recovered/Resolved]
  - Transfusion [Recovered/Resolved]
